FAERS Safety Report 4721624-8 (Version None)
Quarter: 2005Q3

REPORT INFORMATION
  Report Type: 
  Country: None (occurrence: None)
  Receive Date: 20050721
  Receipt Date: 20050113
  Transmission Date: 20060218
  Serious: No
  Sender: FDA-Public Use
  Company Number: US-BRISTOL-MYERS SQUIBB COMPANY-12825568

PATIENT
  Age: 32 Year
  Sex: Female

DRUGS (2)
  1. COUMADIN [Suspect]
     Dosage: THERAPY START DATE:  ^A FEW MONTHS AGO^
     Route: 048
  2. LASIX [Concomitant]

REACTIONS (1)
  - DYSPEPSIA [None]
